FAERS Safety Report 23637004 (Version 1)
Quarter: 2024Q1

REPORT INFORMATION
  Report Type: Spontaneous
  Country: ZA (occurrence: None)
  Receive Date: 20240315
  Receipt Date: 20240315
  Transmission Date: 20240409
  Serious: Yes (Death)
  Sender: FDA-Public Use
  Company Number: 2024A063791

PATIENT
  Age: 82 Year
  Sex: Female

DRUGS (2)
  1. BUDESONIDE\FORMOTEROL FUMARATE DIHYDRATE [Suspect]
     Active Substance: BUDESONIDE\FORMOTEROL FUMARATE DIHYDRATE
     Indication: Asthma
     Dosage: 120 UG UNKNOWN UNKNOWN
     Route: 055
  2. BUDONEB [Concomitant]
     Indication: Asthma
     Dosage: 0.5MG UNKNOWN
     Route: 055

REACTIONS (1)
  - Death [Fatal]
